FAERS Safety Report 6971519-4 (Version None)
Quarter: 2010Q3

REPORT INFORMATION
  Report Type: 
  Country: None (occurrence: None)
  Receive Date: 20100908
  Receipt Date: 20100827
  Transmission Date: 20110219
  Serious: Yes (Other)
  Sender: FDA-Public Use
  Company Number: GXKR2010IN09789

PATIENT
  Age: 32 Year
  Sex: Male

DRUGS (2)
  1. CLOZAPINE [Suspect]
     Indication: SCHIZOPHRENIA, PARANOID TYPE
     Dosage: UP TO 200 MG, PER DAY
     Route: 065
  2. CLOZAPINE [Suspect]
     Dosage: 500 MG, PER DAY
     Route: 065

REACTIONS (5)
  - ANXIETY [None]
  - ELECTROCONVULSIVE THERAPY [None]
  - EMOTIONAL DISTRESS [None]
  - PAROXYSMAL PERCEPTUAL ALTERATION [None]
  - VISUAL IMPAIRMENT [None]
